FAERS Safety Report 6496708-7 (Version None)
Quarter: 2009Q4

REPORT INFORMATION
  Report Type: 
  Country: None (occurrence: None)
  Receive Date: 20091211
  Receipt Date: 20091201
  Transmission Date: 20100525
  Serious: No
  Sender: FDA-Public Use
  Company Number: 2009120002

PATIENT

DRUGS (2)
  1. ONSOLIS [Suspect]
  2. LORTAB (ACETAMINOPHEN, HYDROCODONE) [Concomitant]

REACTIONS (2)
  - DRUG PRESCRIBING ERROR [None]
  - INTERCEPTED DRUG DISPENSING ERROR [None]
